FAERS Safety Report 21479272 (Version 1)
Quarter: 2022Q4

REPORT INFORMATION
  Report Type: Spontaneous
  Country: US (occurrence: None)
  Receive Date: 20221018
  Receipt Date: 20221018
  Transmission Date: 20230112
  Serious: Yes (Hospitalization)
  Sender: FDA-Public Use
  Company Number: None

PATIENT
  Age: 65 Year
  Sex: Female

DRUGS (1)
  1. AMBRISENTAN [Suspect]
     Active Substance: AMBRISENTAN

REACTIONS (7)
  - Hypoxia [None]
  - Dyspnoea [None]
  - Productive cough [None]
  - Acute respiratory failure [None]
  - Electrocardiogram T wave inversion [None]
  - Troponin increased [None]
  - Brain natriuretic peptide increased [None]

NARRATIVE: CASE EVENT DATE: 20221006
